FAERS Safety Report 6982922-0 (Version None)
Quarter: 2010Q3

REPORT INFORMATION
  Report Type: 
  Country: None (occurrence: None)
  Receive Date: 20100914
  Receipt Date: 20100507
  Transmission Date: 20110219
  Serious: Yes (Other)
  Sender: FDA-Public Use
  Company Number: US-PFIZER INC-2010045952

PATIENT
  Sex: Female
  Weight: 49.887 kg

DRUGS (1)
  1. LYRICA [Suspect]
     Indication: CERVICOGENIC HEADACHE
     Dosage: 25 MG, UP TO TWO PER DAY
     Route: 048
     Dates: start: 20100218, end: 20100330

REACTIONS (6)
  - ATAXIA [None]
  - BALANCE DISORDER [None]
  - DIZZINESS [None]
  - EUPHORIC MOOD [None]
  - IMPAIRED WORK ABILITY [None]
  - MOTION SICKNESS [None]
